FAERS Safety Report 15804829 (Version 1)
Quarter: 2019Q1

REPORT INFORMATION
  Report Type: Report from Study
  Country: None (occurrence: KR)
  Receive Date: 20190109
  Receipt Date: 20190109
  Transmission Date: 20190417
  Serious: Yes (Other)
  Sender: FDA-Public Use
  Company Number: KR-ABBVIE-19K-090-2618116-00

PATIENT
  Age: 25 Year
  Sex: Male
  Weight: 62 kg

DRUGS (3)
  1. MESALAZINE [Concomitant]
     Active Substance: MESALAMINE
     Indication: CROHN^S DISEASE
     Route: 048
  2. HUMIRA [Suspect]
     Active Substance: ADALIMUMAB
     Indication: CROHN^S DISEASE
     Route: 058
     Dates: start: 20190108, end: 20190108
  3. HUMIRA [Suspect]
     Active Substance: ADALIMUMAB
     Indication: CROHN^S DISEASE
     Route: 058
     Dates: start: 2016, end: 2017

REACTIONS (5)
  - Injection site pruritus [Unknown]
  - Abdominal pain [Unknown]
  - Gastrointestinal inflammation [Unknown]
  - Injection site erythema [Unknown]
  - Intestinal perforation [Recovered/Resolved]

NARRATIVE: CASE EVENT DATE: 2018
